FAERS Safety Report 4724018-4 (Version None)
Quarter: 2005Q3

REPORT INFORMATION
  Report Type: 
  Country: None (occurrence: None)
  Receive Date: 20050722
  Receipt Date: 20050706
  Transmission Date: 20060218
  Serious: No
  Sender: FDA-Public Use
  Company Number: ABOHM-05-0313

PATIENT
  Sex: Female
  Weight: 136.0791 kg

DRUGS (1)
  1. ABRAXANE (PACLITAXEL) (INJECTION FOR INFUSION) (PACLITAXEL PROTEIN-BOU [Suspect]
     Indication: BREAST CANCER
     Dosage: INTRAVENOUS DRIP
     Route: 041

REACTIONS (8)
  - ABNORMAL BEHAVIOUR [None]
  - BURNING SENSATION [None]
  - CONVULSION [None]
  - DEPRESSED LEVEL OF CONSCIOUSNESS [None]
  - OXYGEN SATURATION DECREASED [None]
  - PRURITUS [None]
  - SCREAMING [None]
  - STARING [None]
